FAERS Safety Report 8492953-X (Version None)
Quarter: 2012Q3

REPORT INFORMATION
  Report Type: 
  Country: None (occurrence: None)
  Receive Date: 20120706
  Receipt Date: 20120627
  Transmission Date: 20120928
  Serious: Yes (Congenital Anomaly)
  Sender: FDA-Public Use
  Company Number: GB-VIIV HEALTHCARE LIMITED-B0811275A

PATIENT

DRUGS (3)
  1. PROTEASE INHIBITOR [Suspect]
     Indication: PRODUCT USED FOR UNKNOWN INDICATION
     Route: 064
  2. RALTEGRAVIR [Suspect]
     Indication: PRODUCT USED FOR UNKNOWN INDICATION
     Route: 064
     Dates: start: 20120101
  3. MARAVIROC [Suspect]
     Indication: HIV TROPISM TEST
     Route: 064
     Dates: start: 20120101

REACTIONS (2)
  - POLYDACTYLY [None]
  - FOETAL EXPOSURE DURING PREGNANCY [None]
